FAERS Safety Report 16849840 (Version 1)
Quarter: 2019Q4

REPORT INFORMATION
  Report Type: Spontaneous
  Country: US (occurrence: US)
  Receive Date: 20190925
  Receipt Date: 20190925
  Transmission Date: 20200122
  Serious: Yes (Hospitalization)
  Sender: FDA-Public Use
  Company Number: None

PATIENT
  Age: 51 Year
  Sex: Female
  Weight: 66.1 kg

DRUGS (1)
  1. CARBOPLATIN 60 ML VIAL [Suspect]
     Active Substance: CARBOPLATIN
     Indication: OVARIAN CANCER METASTATIC
     Dosage: ?          OTHER FREQUENCY:EVERY 21 DAYS;?
     Route: 042
     Dates: start: 20190830

REACTIONS (4)
  - Pruritus [None]
  - Throat irritation [None]
  - Infusion related reaction [None]
  - Abdominal pain [None]

NARRATIVE: CASE EVENT DATE: 20190918
